FAERS Safety Report 17739807 (Version 1)
Quarter: 2020Q2

REPORT INFORMATION
  Report Type: Spontaneous
  Country: US (occurrence: US)
  Receive Date: 20200501
  Receipt Date: 20200501
  Transmission Date: 20200714
  Serious: Yes (Life-Threatening, Hospitalization)
  Sender: FDA-Public Use
  Company Number: None

PATIENT
  Age: 61 Year
  Sex: Female
  Weight: 63.05 kg

DRUGS (14)
  1. ACTOS [Concomitant]
     Active Substance: PIOGLITAZONE HYDROCHLORIDE
  2. VISCEPA [Concomitant]
  3. JARDIANCE [Suspect]
     Active Substance: EMPAGLIFLOZIN
     Indication: TYPE 2 DIABETES MELLITUS
     Dosage: ?          QUANTITY:1 TABLET;?
     Route: 048
     Dates: start: 2018, end: 20200306
  4. METFORMIN [Concomitant]
     Active Substance: METFORMIN HYDROCHLORIDE
  5. ALPRAZOLAM. [Concomitant]
     Active Substance: ALPRAZOLAM
  6. COQ10 [Concomitant]
     Active Substance: UBIDECARENONE
  7. CRANBERRY. [Concomitant]
     Active Substance: CRANBERRY
  8. NOVOLOG [Concomitant]
     Active Substance: INSULIN ASPART
  9. LOSARTAN + HCTZ [Concomitant]
  10. BABY ASA [Concomitant]
     Active Substance: ASPIRIN
  11. CRESTOR [Concomitant]
     Active Substance: ROSUVASTATIN CALCIUM
  12. VITAMIN D3 [Concomitant]
     Active Substance: CHOLECALCIFEROL
  13. OZEMPIC [Concomitant]
     Active Substance: SEMAGLUTIDE
  14. SINGULAIR [Concomitant]
     Active Substance: MONTELUKAST SODIUM

REACTIONS (7)
  - Vomiting [None]
  - Dehydration [None]
  - Urinary tract infection [None]
  - Sinus tachycardia [None]
  - Nausea [None]
  - Sepsis [None]
  - Escherichia infection [None]

NARRATIVE: CASE EVENT DATE: 20200305
